FAERS Safety Report 7956149-X (Version None)
Quarter: 2011Q4

REPORT INFORMATION
  Report Type: 
  Country: None (occurrence: None)
  Receive Date: 20111205
  Receipt Date: 20111128
  Transmission Date: 20120403
  Serious: Yes (Hospitalization, Other)
  Sender: FDA-Public Use
  Company Number: US-ELI_LILLY_AND_COMPANY-US201106004034

PATIENT
  Sex: Female
  Weight: 78.005 kg

DRUGS (8)
  1. ACTOS [Concomitant]
     Dosage: 45 MG, QD
     Route: 048
  2. FERROUS SULFATE TAB [Concomitant]
     Dosage: 325 MG, QD
     Route: 048
  3. ATENOLOL [Concomitant]
     Dosage: 25 MG, QD
     Route: 048
  4. SIMVASTATIN [Concomitant]
     Dosage: 20 MG, QD
     Route: 048
  5. SYNTHROID [Concomitant]
     Dosage: 25 MG, QD
     Route: 048
  6. BYETTA [Suspect]
     Indication: TYPE 2 DIABETES MELLITUS
     Dosage: 5 UG, BID
     Route: 058
     Dates: start: 20100228, end: 20100315
  7. LISINOPRIL [Concomitant]
     Dosage: 20 MG, QD
     Route: 048
  8. MULTI-VITAMIN [Concomitant]
     Dosage: UNK, QD
     Route: 048

REACTIONS (2)
  - PANCREATITIS ACUTE [None]
  - RENAL DISORDER [None]
